FAERS Safety Report 8925439 (Version 1)
Quarter: 2012Q4

REPORT INFORMATION
  Report Type: 
  Country: GB (occurrence: GB)
  Receive Date: 20121126
  Receipt Date: 20121126
  Transmission Date: 20130627
  Serious: Yes (Hospitalization, Other)
  Sender: FDA-Public Use
  Company Number: PHFR2012GB006081

PATIENT
  Sex: Female

DRUGS (1)
  1. CLOZARIL (CLOZAPINE) [Suspect]
     Indication: SCHIZOPHRENIA
     Dosage: 400 mg, UNK
     Route: 048
     Dates: start: 20121012

REACTIONS (3)
  - Fall [Unknown]
  - Dizziness [Unknown]
  - Antipsychotic drug level increased [Unknown]
